FAERS Safety Report 8131661-1 (Version None)
Quarter: 2012Q1

REPORT INFORMATION
  Report Type: 
  Country: None (occurrence: None)
  Receive Date: 20120207
  Receipt Date: 20120130
  Transmission Date: 20120608
  Serious: Yes (Hospitalization)
  Sender: FDA-Public Use
  Company Number: 2012MA001370

PATIENT
  Age: 58 Year
  Sex: Male

DRUGS (5)
  1. CELECOXIB [Concomitant]
  2. FENTANYL-75 [Suspect]
     Indication: PAIN
     Dosage: 75 UG; TRSD
     Route: 062
  3. MIRTAZAPINE [Concomitant]
  4. CITALOPRAM HYDROBROMIDE [Concomitant]
  5. OXYCODONE + ACETAMINOPHEN TABLETS, USP 5 MG/325 MG (AMIDE) [Suspect]
     Indication: PAIN
     Dosage: BID; PO
     Route: 048

REACTIONS (11)
  - INSOMNIA [None]
  - SEROTONIN SYNDROME [None]
  - HYPERHIDROSIS [None]
  - ANXIETY [None]
  - HYPERTENSION [None]
  - AGITATION [None]
  - TACHYCARDIA [None]
  - TACHYPNOEA [None]
  - CONFUSIONAL STATE [None]
  - YAWNING [None]
  - DRUG WITHDRAWAL SYNDROME [None]
